FAERS Safety Report 26090168 (Version 1)
Quarter: 2025Q4

REPORT INFORMATION
  Report Type: Spontaneous
  Country: US (occurrence: US)
  Receive Date: 20251126
  Receipt Date: 20251126
  Transmission Date: 20260118
  Serious: No
  Sender: Steriscience PTE
  Company Number: US-STERISCIENCE B.V.-2024-ST-002032

PATIENT
  Age: 10 Year
  Sex: Female

DRUGS (13)
  1. VANCOMYCIN [Suspect]
     Active Substance: VANCOMYCIN
     Indication: Product used for unknown indication
     Dosage: 21 MILLIGRAM/KILOGRAM/DOSE INFUSION OVER 2H EVERY 6H (19 TO 24 DAYS)
  2. AZTREONAM [Suspect]
     Active Substance: AZTREONAM
     Indication: Product used for unknown indication
     Dosage: 75MILLIGRAM/KILOGRAM/DOSE INFUSION OVER 30MIN EVERY 6H
  3. AVIBACTAM SODIUM\CEFTAZIDIME [Suspect]
     Active Substance: AVIBACTAM SODIUM\CEFTAZIDIME
     Indication: Product used for unknown indication
     Dosage: 50 MILLIGRAM/KILLOGRAM/DOSE INFUSION OVER 2H EVERY 8H
  4. ACETYLCYSTEINE [Concomitant]
     Active Substance: ACETYLCYSTEINE
     Indication: Product used for unknown indication
     Dosage: NEBULISED SOLUTION
  5. PREDNISOLONE [Concomitant]
     Active Substance: PREDNISOLONE
     Indication: Infective pulmonary exacerbation of cystic fibrosis
     Dosage: 2 MILLIGRAM/KILOGRAMG/DAY FOR 5 DAYS
     Route: 048
  6. ALBUTEROL [Concomitant]
     Active Substance: ALBUTEROL
     Indication: Product used for unknown indication
     Dosage: UNK
     Route: 065
  7. DORNASE ALFA [Concomitant]
     Active Substance: DORNASE ALFA
     Indication: Product used for unknown indication
     Dosage: UNK
     Route: 065
  8. TOBRAMYCIN [Concomitant]
     Active Substance: TOBRAMYCIN
     Indication: Product used for unknown indication
     Dosage: ALTERNATED EVERY OTHER MONTH
     Route: 065
  9. TOBRAMYCIN [Concomitant]
     Active Substance: TOBRAMYCIN
     Dosage: UNK, FOR 19 TO 24 DAYS
     Route: 065
  10. LEVOFLOXACIN [Concomitant]
     Active Substance: LEVOFLOXACIN
     Indication: Product used for unknown indication
     Dosage: UNK, FOR 19 TO 24 DAYS
  11. LINEZOLID [Concomitant]
     Active Substance: LINEZOLID
     Indication: Infective pulmonary exacerbation of cystic fibrosis
     Dosage: UNK
     Route: 048
  12. MINOCYCLINE [Concomitant]
     Active Substance: MINOCYCLINE HYDROCHLORIDE
     Indication: Infective pulmonary exacerbation of cystic fibrosis
     Dosage: UNK
     Route: 048
  13. SODIUM CHLORIDE [Concomitant]
     Active Substance: SODIUM CHLORIDE
     Indication: Product used for unknown indication
     Dosage: UNK

REACTIONS (1)
  - Transaminases increased [Unknown]
